FAERS Safety Report 22609654 (Version 1)
Quarter: 2023Q2

REPORT INFORMATION
  Report Type: Spontaneous
  Country: DE (occurrence: DE)
  Receive Date: 20230616
  Receipt Date: 20230616
  Transmission Date: 20230721
  Serious: Yes (Hospitalization)
  Sender: FDA-Public Use
  Company Number: DE-drreddys-LIT/GER/23/0167252

PATIENT
  Age: 65 Year
  Sex: Female

DRUGS (7)
  1. DULOXETINE [Suspect]
     Active Substance: DULOXETINE
     Indication: Major depression
  2. MIRTAZAPINE [Suspect]
     Active Substance: MIRTAZAPINE
     Indication: Major depression
  3. OLANZAPINE [Suspect]
     Active Substance: OLANZAPINE
     Indication: Major depression
  4. QUETIAPINE [Suspect]
     Active Substance: QUETIAPINE
     Indication: Major depression
  5. SERTRALINE [Suspect]
     Active Substance: SERTRALINE HYDROCHLORIDE
     Indication: Major depression
  6. MOCLOBEMIDE [Suspect]
     Active Substance: MOCLOBEMIDE
     Indication: Major depression
  7. AMISULPRIDE [Suspect]
     Active Substance: AMISULPRIDE
     Indication: Major depression

REACTIONS (7)
  - Chronic kidney disease [Unknown]
  - Frontotemporal dementia [Unknown]
  - Restlessness [Recovering/Resolving]
  - Somnolence [Unknown]
  - Akathisia [Unknown]
  - Agitation [Recovering/Resolving]
  - Hyponatraemia [Unknown]
